FAERS Safety Report 4582219-2 (Version None)
Quarter: 2005Q1

REPORT INFORMATION
  Report Type: 
  Country: None (occurrence: None)
  Receive Date: 20050214
  Receipt Date: 20050127
  Transmission Date: 20050727
  Serious: Yes (Hospitalization)
  Sender: FDA-Public Use
  Company Number: TRP_0064_2005

PATIENT
  Age: 42 Year
  Sex: Female

DRUGS (9)
  1. RIBASPHERE [Suspect]
     Indication: HEPATITIS C
     Dates: start: 20041203, end: 20041223
  2. RIBASPHERE [Suspect]
     Indication: HEPATITIS C
     Dates: start: 20050110
  3. RIBASPHERE [Suspect]
     Indication: HEPATITIS C
     Dosage: DF  PO
     Route: 048
     Dates: start: 20050110
  4. PEG-INTRON [Suspect]
     Indication: HEPATITIS C
     Dosage: DF SC
     Route: 058
     Dates: start: 20041203, end: 20041223
  5. PEG-INTRON [Suspect]
     Indication: HEPATITIS C
     Dosage: DF  SC
     Route: 058
     Dates: start: 20050110
  6. ALCOHOL [Suspect]
     Dosage: DF   PO
     Route: 048
  7. CELEXA [Concomitant]
  8. EPIPEN [Concomitant]
  9. VITAMINS/ MINERALS / SUPPLEMENTS NOS [Concomitant]

REACTIONS (3)
  - ALCOHOLIC [None]
  - DEPRESSION [None]
  - SUICIDAL IDEATION [None]
